FAERS Safety Report 9458011 (Version 2)
Quarter: 2014Q2

REPORT INFORMATION
  Report Type: Spontaneous
  Country: US (occurrence: US)
  Receive Date: 20130814
  Receipt Date: 20140501
  Transmission Date: 20141212
  Serious: Yes (Death, Hospitalization, Other)
  Sender: FDA-Public Use
  Company Number: US-PFIZER INC-2013230290

PATIENT
  Age: 59 Year
  Sex: Male

DRUGS (7)
  1. DILANTIN [Suspect]
     Indication: CONVULSION
     Dosage: 100 MG, 3X/DAY
     Route: 048
     Dates: start: 20061122
  2. DILANTIN [Suspect]
     Dosage: 200 MG, 2X/DAY
     Route: 048
     Dates: start: 20061208
  3. NORVASC [Concomitant]
     Dosage: 5 MG, 2X/DAY
     Route: 048
     Dates: start: 20061122
  4. ZOSYN [Concomitant]
     Dosage: UNK
     Dates: start: 20061122
  5. ATIVAN [Concomitant]
     Dosage: 1 MG, UNK
     Dates: start: 20061122
  6. FOLIC ACID [Concomitant]
     Dosage: 1 MG, UNK
     Route: 048
     Dates: start: 20061204
  7. TOPROL XL [Concomitant]
     Dosage: 50 MG, UNK
     Route: 048
     Dates: start: 20061208

REACTIONS (2)
  - Toxic epidermal necrolysis [Fatal]
  - Stevens-Johnson syndrome [Unknown]
